FAERS Safety Report 16916279 (Version 1)
Quarter: 2019Q4

REPORT INFORMATION
  Report Type: Spontaneous
  Country: ES (occurrence: ES)
  Receive Date: 20191014
  Receipt Date: 20191014
  Transmission Date: 20200122
  Serious: Yes (Other)
  Sender: FDA-Public Use
  Company Number: ES-ALLERGAN-1941220US

PATIENT
  Sex: Female

DRUGS (3)
  1. OPTOVITE B12 [Concomitant]
     Active Substance: CYANOCOBALAMIN
     Indication: PRODUCT USED FOR UNKNOWN INDICATION
     Dosage: 1000 MICROGRAM (5 AMPULES OF 2 ML)
     Route: 065
  2. NITROGLYCERIN - BP [Suspect]
     Active Substance: NITROGLYCERIN
     Indication: ANAL FISSURE HAEMORRHAGE
     Dosage: 1 DF, Q12H
     Route: 054
     Dates: start: 20190916
  3. LOETTE [Concomitant]
     Active Substance: ETHINYL ESTRADIOL\LEVONORGESTREL
     Indication: PRODUCT USED FOR UNKNOWN INDICATION
     Dosage: 100/20 MICROGRAM, (63 (3 X 21) TABLETS)
     Route: 048

REACTIONS (7)
  - Anal pruritus [Not Recovered/Not Resolved]
  - Dizziness [Not Recovered/Not Resolved]
  - Product use in unapproved indication [Unknown]
  - Vision blurred [Not Recovered/Not Resolved]
  - Tinnitus [Not Recovered/Not Resolved]
  - Nausea [Not Recovered/Not Resolved]
  - Headache [Not Recovered/Not Resolved]

NARRATIVE: CASE EVENT DATE: 20190916
